FAERS Safety Report 8838146 (Version 1)
Quarter: 2012Q4

REPORT INFORMATION
  Report Type: Report from Study
  Country: ES (occurrence: ES)
  Receive Date: 20121012
  Receipt Date: 20121012
  Transmission Date: 20130627
  Serious: Yes (Hospitalization)
  Sender: FDA-Public Use
  Company Number: ES-BRISTOL-MYERS SQUIBB COMPANY-17013665

PATIENT
  Age: 64 Year
  Sex: Female
  Weight: 60 kg

DRUGS (5)
  1. PACLITAXEL [Suspect]
     Indication: BREAST CANCER METASTATIC
     Dosage: Last dose 25Jan12
     Route: 042
     Dates: start: 20120118
  2. TRASTUZUMAB [Suspect]
     Indication: BREAST CANCER METASTATIC
     Dosage: Last dose: 25Jan12
     Route: 042
     Dates: start: 20120118
  3. MORPHINE SULFATE [Suspect]
  4. IBUPROFEN [Suspect]
  5. LEVETIRACETAM [Concomitant]
     Indication: COGNITIVE DISORDER
     Dates: start: 20120103

REACTIONS (2)
  - Cognitive disorder [Recovered/Resolved]
  - Bone pain [Recovered/Resolved]
